FAERS Safety Report 10789887 (Version 2)
Quarter: 2015Q1

REPORT INFORMATION
  Report Type: Report from Study
  Country: JP (occurrence: JP)
  Receive Date: 20150212
  Receipt Date: 20150309
  Transmission Date: 20150721
  Serious: Yes (Death, Other)
  Sender: FDA-Public Use
  Company Number: JP-009507513-1502JPN004667

PATIENT
  Age: 59 Year
  Sex: Female
  Weight: 50 kg

DRUGS (10)
  1. ALEVIATIN [Concomitant]
     Active Substance: PHENYTOIN SODIUM
     Indication: EPILEPSY
     Dosage: 67 MG, BID;  FORMULATION: POR
     Route: 048
     Dates: start: 20111014, end: 20130820
  2. PHENOBAL [Concomitant]
     Active Substance: PHENOBARBITAL
     Indication: EPILEPSY
     Dosage: 33 MG, BID;  FORMULATION: POR
     Route: 048
     Dates: start: 20111014, end: 20130820
  3. MONILAC [Concomitant]
     Active Substance: LACTULOSE
     Indication: HEPATIC CIRRHOSIS
     Dosage: 10 ML, TID
     Route: 048
     Dates: start: 20111014, end: 20130820
  4. DIAMOX SEQUELS [Concomitant]
     Active Substance: ACETAZOLAMIDE
     Indication: EPILEPSY
     Dosage: 125 MG, QD;  FORMULATION: POR
     Route: 048
     Dates: start: 20111014, end: 20130820
  5. PROLMON [Concomitant]
     Active Substance: PROTOPORPHYRIN DISODIUM
     Indication: EPILEPSY
     Dosage: 20 MG, TID;  FORMULATION: POR
     Route: 048
     Dates: start: 20111014, end: 20130820
  6. LASIX [Concomitant]
     Active Substance: FUROSEMIDE
     Indication: HEPATIC CIRRHOSIS
     Dosage: 20 MG, QD; FORMULATION: POR
     Route: 048
     Dates: start: 20111014, end: 20130820
  7. ALDACTONE [Concomitant]
     Active Substance: SPIRONOLACTONE
     Indication: HEPATIC CIRRHOSIS
     Dosage: 50 MG, QD;  FORMULATION: POR
     Route: 048
     Dates: start: 20111014, end: 20130820
  8. PEGINTRON [Suspect]
     Active Substance: PEGINTERFERON ALFA-2B
     Indication: HEPATIC CIRRHOSIS
     Dosage: 50 MICROGRAM, QW
     Route: 058
     Dates: start: 20120911, end: 20121022
  9. REBETOL [Suspect]
     Active Substance: RIBAVIRIN
     Indication: HEPATIC CIRRHOSIS
     Dosage: 400 MG, QD
     Route: 048
     Dates: start: 20120911, end: 20121029
  10. LIVACT [Concomitant]
     Active Substance: AMINO ACIDS
     Indication: HEPATIC CIRRHOSIS
     Dosage: 1 DF, TID;  FORMULATION: POR
     Route: 048
     Dates: start: 20111014, end: 20130820

REACTIONS (4)
  - Insomnia [Recovered/Resolved]
  - Gastric cancer [Fatal]
  - Depression [Recovered/Resolved]
  - Malaise [Recovered/Resolved]

NARRATIVE: CASE EVENT DATE: 20121028
